FAERS Safety Report 5204603-6 (Version None)
Quarter: 2007Q1

REPORT INFORMATION
  Report Type: 
  Country: None (occurrence: None)
  Receive Date: 20070110
  Receipt Date: 20060522
  Transmission Date: 20070707
  Serious: No
  Sender: FDA-Public Use
  Company Number: US-BRISTOL-MYERS SQUIBB COMPANY-13385208

PATIENT

DRUGS (7)
  1. ABILIFY [Suspect]
  2. WELLBUTRIN [Concomitant]
  3. ALLOPURINOL SODIUM [Concomitant]
  4. HYDROCHLOROTHIAZIDE [Concomitant]
  5. NAPROXEN [Concomitant]
  6. SOMA [Concomitant]
  7. RANITIDINE [Concomitant]

REACTIONS (1)
  - LIVER FUNCTION TEST ABNORMAL [None]
